FAERS Safety Report 9927618 (Version 5)
Quarter: 2014Q2

REPORT INFORMATION
  Report Type: Report from Study
  Country: US (occurrence: US)
  Receive Date: 20140227
  Receipt Date: 20140530
  Transmission Date: 20141212
  Serious: Yes (Hospitalization)
  Sender: FDA-Public Use
  Company Number: US-BIOGENIDEC-2014BI017852

PATIENT
  Age: 61 Year
  Sex: Female

DRUGS (1)
  1. TYSABRI [Suspect]
     Indication: MULTIPLE SCLEROSIS
     Route: 042
     Dates: start: 20120221, end: 20131212

REACTIONS (4)
  - Pneumonia aspiration [Recovered/Resolved]
  - Ophthalmic herpes zoster [Recovered/Resolved]
  - Herpes zoster meningitis [Recovered/Resolved]
  - Polychondritis [Unknown]
